FAERS Safety Report 7727442-0 (Version None)
Quarter: 2011Q3

REPORT INFORMATION
  Report Type: 
  Country: None (occurrence: None)
  Receive Date: 20110902
  Receipt Date: 20110823
  Transmission Date: 20111222
  Serious: Yes (Hospitalization)
  Sender: FDA-Public Use
  Company Number: GB-ELI_LILLY_AND_COMPANY-GB201108007563

PATIENT
  Age: 74 Year
  Sex: Female

DRUGS (11)
  1. GEMCITABINE HYDROCHLORIDE [Suspect]
     Indication: LUNG NEOPLASM MALIGNANT
     Dosage: 2000 MG, QD
     Route: 042
     Dates: start: 20110510
  2. FLUTICASONE PROPIONATE [Concomitant]
     Dosage: 1 DF, QD
     Route: 055
  3. SPIRIVA [Concomitant]
     Dosage: 18 UG, QD
     Route: 048
  4. ALBUTEROL [Concomitant]
     Dosage: 2 DF, QD
     Route: 055
  5. MORPHINE SULFATE [Concomitant]
     Dosage: 20 MG, QD
     Route: 048
  6. THEOPHYLLINE [Concomitant]
     Dosage: 400 MG, QD
     Route: 048
  7. OTHER PHARMA COMPANY INV DRUG [Suspect]
     Indication: LUNG NEOPLASM MALIGNANT
     Dosage: UNK
     Dates: start: 20110311, end: 20110519
  8. OMEPRAZOLE [Concomitant]
     Dosage: 20 MG, QD
     Route: 048
  9. URSODIOL [Concomitant]
     Dosage: 750 MG, QD
     Route: 048
  10. CARBOPLATIN [Suspect]
     Indication: LUNG NEOPLASM MALIGNANT
     Dosage: 425 MG, QD
     Route: 042
     Dates: start: 20110503
  11. QUININE SULFATE [Concomitant]
     Dosage: 300 MG, QD
     Route: 048

REACTIONS (1)
  - PULMONARY HAEMORRHAGE [None]
